FAERS Safety Report 5298973-0 (Version None)
Quarter: 2007Q2

REPORT INFORMATION
  Report Type: 
  Country: None (occurrence: None)
  Receive Date: 20070417
  Receipt Date: 20070405
  Transmission Date: 20071010
  Serious: Yes (Hospitalization)
  Sender: FDA-Public Use
  Company Number: AU-AMGEN-US214812

PATIENT
  Sex: Male

DRUGS (4)
  1. PANITUMUMAB [Suspect]
     Indication: COLORECTAL CANCER
     Route: 042
     Dates: start: 20070227
  2. FLUOROURACIL [Suspect]
     Route: 042
     Dates: start: 20070227
  3. LEUCOVORIN CALCIUM [Suspect]
     Route: 042
     Dates: start: 20070227
  4. IRINOTECAN HCL [Suspect]
     Route: 042
     Dates: start: 20070227

REACTIONS (1)
  - SEPSIS [None]
